FAERS Safety Report 6962062-7 (Version None)
Quarter: 2010Q3

REPORT INFORMATION
  Report Type: 
  Country: None (occurrence: None)
  Receive Date: 20100901
  Receipt Date: 20100901
  Transmission Date: 20110219
  Serious: Yes (Disabling)
  Sender: FDA-Public Use
  Company Number: None

PATIENT
  Age: 62 Year
  Sex: Female
  Weight: 68.0396 kg

DRUGS (2)
  1. CIPROFLOXACIN [Suspect]
     Indication: GALLBLADDER DISORDER
     Dosage: 500 MG. 1 PROB. SEVERAL TIMES A DAY
     Dates: start: 20100401
  2. CIPROFLOXACIN [Suspect]
     Indication: URINARY TRACT INFECTION
     Dosage: 500 MG. ? SEVERAL TIMES A DAY
     Dates: start: 20100601, end: 20100701

REACTIONS (3)
  - ARTHRALGIA [None]
  - MUSCULOSKELETAL DISORDER [None]
  - TENDON PAIN [None]
